FAERS Safety Report 5848522-0 (Version None)
Quarter: 2008Q3

REPORT INFORMATION
  Report Type: 
  Country: None (occurrence: None)
  Receive Date: 20080818
  Receipt Date: 20080805
  Transmission Date: 20090109
  Serious: Yes (Other)
  Sender: FDA-Public Use
  Company Number: US-ELI_LILLY_AND_COMPANY-US200808001119

PATIENT
  Age: 79 Year
  Sex: Male

DRUGS (4)
  1. GEMZAR [Suspect]
     Indication: PANCREATIC CARCINOMA METASTATIC
     Dosage: 1000 MG/M2, UNK
     Dates: start: 20070720
  2. TARCEVA [Concomitant]
     Indication: PANCREATIC CARCINOMA METASTATIC
     Dosage: 100 MG, DAILY (1/D)
     Route: 048
     Dates: start: 20070711, end: 20080728
  3. TOPROL-XL [Concomitant]
     Dosage: 150 MG, UNK
     Dates: start: 20070711
  4. ALTACE [Concomitant]
     Dosage: 1108 UNK, UNK
     Dates: start: 20070711

REACTIONS (4)
  - CORONARY ARTERY DISEASE [None]
  - EJECTION FRACTION DECREASED [None]
  - LEFT VENTRICULAR HYPERTROPHY [None]
  - MYOCARDIAL INFARCTION [None]
